FAERS Safety Report 7213163-X (Version None)
Quarter: 2011Q1

REPORT INFORMATION
  Report Type: 
  Country: None (occurrence: None)
  Receive Date: 20110106
  Receipt Date: 20101227
  Transmission Date: 20110831
  Serious: Yes (Disabling)
  Sender: FDA-Public Use
  Company Number: JP-BRISTOL-MYERS SQUIBB COMPANY-15397573

PATIENT
  Age: 57 Year
  Sex: Female
  Weight: 55 kg

DRUGS (3)
  1. TAXOL [Suspect]
     Indication: BREAST CANCER
     Dosage: ALSO TAKEN ON 25APR2006
     Route: 041
     Dates: start: 20060425, end: 20061218
  2. ADRIACIN [Suspect]
     Indication: BREAST CANCER METASTATIC
     Dosage: ALSO TAKEN ON 25APR2006
     Dates: start: 20060425, end: 20061218
  3. ENDOXAN [Suspect]
     Indication: BREAST CANCER METASTATIC
     Dosage: ALSO TAKEN ON 25APR2006
     Dates: start: 20060425, end: 20061218

REACTIONS (2)
  - ANOSMIA [None]
  - OLFACTORY NERVE DISORDER [None]
